FAERS Safety Report 9916125 (Version 1)
Quarter: 2014Q1

REPORT INFORMATION
  Report Type: Spontaneous
  Country: DE (occurrence: None)
  Receive Date: 20140219
  Receipt Date: 20140219
  Transmission Date: 20141002
  Serious: Yes (Other)
  Sender: FDA-Public Use
  Company Number: CO-KP-DE-2014-014

PATIENT
  Age: 52 Year
  Sex: Male

DRUGS (2)
  1. CLONIDINE (CLONIDINE) [Suspect]
     Indication: PAIN
     Dosage: 66 UG/D
  2. MORPHINE (MORPHINE) (UNKNOWN) (MORPHINE) [Suspect]
     Indication: PAIN
     Dosage: UNKNOWN

REACTIONS (1)
  - Erectile dysfunction [None]
